FAERS Safety Report 5734604-0 (Version None)
Quarter: 2008Q2

REPORT INFORMATION
  Report Type: 
  Country: None (occurrence: None)
  Receive Date: 20080512
  Receipt Date: 20080506
  Transmission Date: 20081010
  Serious: Yes (Life-Threatening, Hospitalization, Other)
  Sender: FDA-Public Use
  Company Number: PHHY2008AR07179

PATIENT
  Sex: Female

DRUGS (1)
  1. LAMISIL [Suspect]
     Dosage: UNK, UNK
     Route: 065
     Dates: start: 20070101, end: 20070101

REACTIONS (4)
  - ILL-DEFINED DISORDER [None]
  - INFLUENZA [None]
  - PNEUMONIA [None]
  - SEDATION [None]
